FAERS Safety Report 5051901-5 (Version None)
Quarter: 2006Q3

REPORT INFORMATION
  Report Type: 
  Country: None (occurrence: None)
  Receive Date: 20060711
  Receipt Date: 20060619
  Transmission Date: 20061208
  Serious: Yes (Death, Hospitalization)
  Sender: FDA-Public Use
  Company Number: US200606004260

PATIENT
  Age: 56 Year
  Sex: Female

DRUGS (1)
  1. ILETIN [Suspect]
     Indication: DIABETES MELLITUS NON-INSULIN-DEPENDENT

REACTIONS (3)
  - CARDIAC FAILURE CONGESTIVE [None]
  - HYPOTHYROIDISM [None]
  - MYOCARDIAL INFARCTION [None]
